FAERS Safety Report 5196643-0 (Version None)
Quarter: 2006Q4

REPORT INFORMATION
  Report Type: 
  Country: None (occurrence: None)
  Receive Date: 20061227
  Receipt Date: 20061211
  Transmission Date: 20070319
  Serious: Yes (Hospitalization, Other)
  Sender: FDA-Public Use
  Company Number: 2005114605

PATIENT
  Age: 49 Year
  Sex: Male

DRUGS (5)
  1. NEURONTIN [Suspect]
     Indication: TORTICOLLIS
     Dates: start: 20001207, end: 20040717
  2. EFFEXOR [Concomitant]
  3. ABILIFY [Concomitant]
  4. CLONIDINE [Concomitant]
  5. DARVOCET [Concomitant]

REACTIONS (5)
  - ABNORMAL BEHAVIOUR [None]
  - DRUG INEFFECTIVE [None]
  - HALLUCINATIONS, MIXED [None]
  - SLEEP ATTACKS [None]
  - SUICIDE ATTEMPT [None]
